FAERS Safety Report 24872243 (Version 1)
Quarter: 2025Q1

REPORT INFORMATION
  Report Type: Spontaneous
  Country: GB (occurrence: GB)
  Receive Date: 20250122
  Receipt Date: 20250122
  Transmission Date: 20250409
  Serious: Yes (Hospitalization, Other)
  Sender: DR REDDYS
  Company Number: None

PATIENT
  Age: 24 Year
  Sex: Male

DRUGS (2)
  1. MONTELUKAST [Suspect]
     Active Substance: MONTELUKAST
     Indication: Product used for unknown indication
  2. TEZEPELUMAB [Suspect]
     Active Substance: TEZEPELUMAB
     Indication: Product used for unknown indication

REACTIONS (2)
  - Mucosal inflammation [Recovered/Resolved with Sequelae]
  - Herpes simplex [Recovered/Resolved with Sequelae]
